FAERS Safety Report 25316721 (Version 6)
Quarter: 2025Q3

REPORT INFORMATION
  Report Type: Spontaneous
  Country: US (occurrence: US)
  Receive Date: 20250515
  Receipt Date: 20250829
  Transmission Date: 20251020
  Serious: Yes (Disabling, Other)
  Sender: AMGEN
  Company Number: US-AMGEN-USASP2025091962

PATIENT
  Age: 48 Year
  Sex: Female

DRUGS (35)
  1. TEPEZZA [Suspect]
     Active Substance: TEPROTUMUMAB-TRBW
     Indication: Toxic goitre
     Route: 040
     Dates: start: 20230210, end: 20230210
  2. TEPEZZA [Suspect]
     Active Substance: TEPROTUMUMAB-TRBW
     Indication: Endocrine ophthalmopathy
     Dosage: 1542 MILLIGRAM, Q3WK (SECOND DOSE)
     Route: 040
     Dates: start: 20230303, end: 20230303
  3. TEPEZZA [Suspect]
     Active Substance: TEPROTUMUMAB-TRBW
     Indication: Graves^ disease
     Dosage: 1542 MILLIGRAM, Q3WK (THIRD DOSE)
     Route: 040
     Dates: start: 20230324, end: 20230324
  4. TEPEZZA [Suspect]
     Active Substance: TEPROTUMUMAB-TRBW
     Dosage: 1542 MILLIGRAM, Q3WK (FOURTH DOSE)
     Route: 040
     Dates: start: 20230414, end: 20230414
  5. TEPEZZA [Suspect]
     Active Substance: TEPROTUMUMAB-TRBW
     Dosage: 1542 MILLIGRAM, Q3WK (FIFTH DOSE)
     Route: 040
     Dates: start: 20230505, end: 20230505
  6. TEPEZZA [Suspect]
     Active Substance: TEPROTUMUMAB-TRBW
     Dosage: 1542 MILLIGRAM, Q3WK (SIXTH DOSE)
     Route: 040
     Dates: start: 20230526, end: 20230526
  7. TEPEZZA [Suspect]
     Active Substance: TEPROTUMUMAB-TRBW
     Dosage: 1542 MILLIGRAM, Q3WK (SEVENTH DOSE)
     Route: 040
     Dates: start: 20230616, end: 20230616
  8. TEPEZZA [Suspect]
     Active Substance: TEPROTUMUMAB-TRBW
     Dosage: 1542 MILLIGRAM, Q3WK (EIGHTH DOSE)
     Route: 040
     Dates: start: 20230707, end: 20230707
  9. AMLODIPINE [Concomitant]
     Active Substance: AMLODIPINE BESYLATE
     Dosage: 5 MILLIGRAM, QD
     Route: 048
  10. CITALOPRAM [Concomitant]
     Active Substance: CITALOPRAM
     Dosage: 20 MILLIGRAM, QD
     Route: 048
  11. ESTROGENS [Concomitant]
     Active Substance: ESTROGENS
     Dosage: UNK UNK, QHS
     Route: 065
  12. JOLESSA [Concomitant]
     Active Substance: ETHINYL ESTRADIOL\LEVONORGESTREL
     Dosage: UNK UNK, QD
     Route: 048
  13. METHIMAZOLE [Concomitant]
     Active Substance: METHIMAZOLE
     Dosage: 10 MILLIGRAM, QD (HALF)
     Route: 048
  14. OMEPRAZOLE [Concomitant]
     Active Substance: OMEPRAZOLE
     Dosage: 20 MILLIGRAM, QD
     Route: 048
  15. OMEPRAZOLE [Concomitant]
     Active Substance: OMEPRAZOLE
     Dosage: 40 MILLIGRAM, QD
     Route: 048
  16. PROGESTERONE [Concomitant]
     Active Substance: PROGESTERONE
     Route: 065
  17. MEDROL [Concomitant]
     Active Substance: METHYLPREDNISOLONE
     Route: 048
  18. DIPHENHYDRAMINE [Concomitant]
     Active Substance: DIPHENHYDRAMINE
     Route: 040
  19. ADRENALIN [Concomitant]
     Active Substance: EPINEPHRINE
     Indication: Anaphylactic reaction
     Route: 030
  20. SODIUM CHLORIDE [Concomitant]
     Active Substance: SODIUM CHLORIDE
     Route: 065
  21. SODIUM CHLORIDE [Concomitant]
     Active Substance: SODIUM CHLORIDE
     Route: 065
  22. SODIUM CHLORIDE [Concomitant]
     Active Substance: SODIUM CHLORIDE
     Route: 065
  23. SODIUM CHLORIDE [Concomitant]
     Active Substance: SODIUM CHLORIDE
     Route: 065
  24. SODIUM CHLORIDE [Concomitant]
     Active Substance: SODIUM CHLORIDE
     Route: 065
  25. SODIUM CHLORIDE [Concomitant]
     Active Substance: SODIUM CHLORIDE
     Route: 065
  26. SODIUM CHLORIDE [Concomitant]
     Active Substance: SODIUM CHLORIDE
     Route: 065
  27. STERILE WATER [Concomitant]
     Active Substance: WATER
     Route: 065
  28. STERILE WATER [Concomitant]
     Active Substance: WATER
     Route: 065
  29. STERILE WATER [Concomitant]
     Active Substance: WATER
     Route: 065
  30. STERILE WATER [Concomitant]
     Active Substance: WATER
     Route: 065
  31. STERILE WATER [Concomitant]
     Active Substance: WATER
     Route: 065
  32. SODIUM CHLORIDE [Concomitant]
     Active Substance: SODIUM CHLORIDE
     Dosage: 100 MILLILITER, Q3WK
     Route: 040
  33. ACETAMINOPHEN [Concomitant]
     Active Substance: ACETAMINOPHEN
     Route: 065
  34. PROPARACAINE [Concomitant]
     Active Substance: PROPARACAINE
     Route: 065
  35. TROPICAMIDE [Concomitant]
     Active Substance: TROPICAMIDE
     Route: 065

REACTIONS (16)
  - Deafness permanent [Not Recovered/Not Resolved]
  - Endocrine ophthalmopathy [Unknown]
  - Graves^ disease [Unknown]
  - Emotional distress [Unknown]
  - Anxiety [Unknown]
  - Myalgia [Unknown]
  - Headache [Recovered/Resolved]
  - Muscle spasms [Unknown]
  - Mean platelet volume increased [Unknown]
  - Thyroid stimulating immunoglobulin increased [Unknown]
  - Hypotension [Unknown]
  - Product communication issue [Unknown]
  - Ear discomfort [Unknown]
  - Diarrhoea [Unknown]
  - Hypoacusis [Unknown]
  - Weight decreased [Unknown]

NARRATIVE: CASE EVENT DATE: 20230101
